FAERS Safety Report 4867567-0 (Version None)
Quarter: 2005Q4

REPORT INFORMATION
  Report Type: 
  Country: None (occurrence: None)
  Receive Date: 20051228
  Receipt Date: 20051123
  Transmission Date: 20060501
  Serious: Yes (Hospitalization, Other)
  Sender: FDA-Public Use
  Company Number: FR-BRISTOL-MYERS SQUIBB COMPANY-13196134

PATIENT
  Age: 84 Year
  Sex: Female

DRUGS (4)
  1. COAPROVEL TABS [Suspect]
     Indication: HYPERTENSION
     Route: 048
     Dates: end: 20050907
  2. ARIMIDEX [Suspect]
     Indication: HYPERTENSION
     Route: 048
     Dates: end: 20050922
  3. ASPEGIC [Concomitant]
     Indication: PAIN
     Dates: end: 20050912
  4. MONO-TILDIEM [Concomitant]
     Indication: HYPERTENSION

REACTIONS (2)
  - COLITIS [None]
  - METASTASES TO LIVER [None]
